FAERS Safety Report 5382681-1 (Version None)
Quarter: 2007Q3

REPORT INFORMATION
  Report Type: 
  Country: None (occurrence: None)
  Receive Date: 20070710
  Receipt Date: 20070702
  Transmission Date: 20080115
  Serious: Yes (Other)
  Sender: FDA-Public Use
  Company Number: US-JNJFOC-20070700911

PATIENT
  Age: 66 Year
  Sex: Female

DRUGS (17)
  1. EXTRA STRENGTH TYLENOL [Suspect]
     Route: 048
  2. EXTRA STRENGTH TYLENOL [Suspect]
     Indication: PAIN
     Route: 048
  3. MYSOLINE [Concomitant]
     Indication: CONVULSION
  4. TRANXENE [Concomitant]
     Indication: CONVULSION
  5. KLOR-CON [Concomitant]
     Indication: BLOOD POTASSIUM
  6. CENTRUM [Concomitant]
     Indication: GENERAL PHYSICAL CONDITION
  7. ASACOL [Concomitant]
     Indication: CROHN'S DISEASE
  8. TRAMADOL HCL [Concomitant]
     Indication: PAIN
  9. FAMOTIDINE [Concomitant]
     Indication: ULCER
  10. DIPHENOXYLATE HCL W/ ATROPINE SULFATE [Concomitant]
     Indication: DIARRHOEA
  11. LONOX [Concomitant]
     Indication: DIARRHOEA
  12. ASPIRIN [Concomitant]
     Indication: CARDIAC DISORDER
  13. METOPROLOL SUCCINATE [Concomitant]
     Indication: BLOOD PRESSURE
  14. VITAMIN B-12 [Concomitant]
     Indication: GENERAL PHYSICAL CONDITION
  15. UNSPECIFIED BLOOD PRESSURE MEDICATION [Concomitant]
     Indication: BLOOD PRESSURE
  16. DETROL LA [Concomitant]
     Indication: BLADDER DISORDER
  17. ALBUTEROL [Concomitant]

REACTIONS (1)
  - CHOKING [None]
